FAERS Safety Report 11878828 (Version 2)
Quarter: 2016Q1

REPORT INFORMATION
  Report Type: Report from Study
  Country: US (occurrence: US)
  Receive Date: 20151230
  Receipt Date: 20160118
  Transmission Date: 20160526
  Serious: Yes (Hospitalization)
  Sender: FDA-Public Use
  Company Number: US-JNJFOC-20151223051

PATIENT
  Age: 75 Year
  Sex: Male

DRUGS (7)
  1. IMBRUVICA [Suspect]
     Active Substance: IBRUTINIB
     Indication: MANTLE CELL LYMPHOMA
     Route: 048
     Dates: start: 20150724
  2. LANTUS [Concomitant]
     Active Substance: INSULIN GLARGINE
  3. ADENOSINE. [Concomitant]
     Active Substance: ADENOSINE
  4. NOVOLOG [Concomitant]
     Active Substance: INSULIN ASPART
  5. LOSARTAN. [Concomitant]
     Active Substance: LOSARTAN
  6. METOPROLOL. [Concomitant]
     Active Substance: METOPROLOL
  7. LIPITOR [Concomitant]
     Active Substance: ATORVASTATIN CALCIUM

REACTIONS (2)
  - Dyspnoea exertional [Not Recovered/Not Resolved]
  - Chest discomfort [Recovered/Resolved]

NARRATIVE: CASE EVENT DATE: 2015
